FAERS Safety Report 23364821 (Version 1)
Quarter: 2024Q1

REPORT INFORMATION
  Report Type: Spontaneous
  Country: JP (occurrence: JP)
  Receive Date: 20240104
  Receipt Date: 20240104
  Transmission Date: 20240410
  Serious: Yes (Hospitalization, Other)
  Sender: FDA-Public Use
  Company Number: JP-STRIDES ARCOLAB LIMITED-2023SP019075

PATIENT
  Age: 45 Year
  Sex: Female

DRUGS (3)
  1. METHOTREXATE [Suspect]
     Active Substance: METHOTREXATE
     Indication: Rheumatoid arthritis
     Dosage: UNK
     Route: 065
  2. METHOTREXATE [Suspect]
     Active Substance: METHOTREXATE
     Indication: Immunosuppressant drug therapy
  3. CISPLATIN [Suspect]
     Active Substance: CISPLATIN
     Indication: Nasal sinus cancer
     Dosage: 20 MG/M2 (TOTAL OF 5?DOSES OF INTRA-ARTERIAL INFUSION) 120MG/MM2 AT A RATIO OF JAW ARTERY:SACRAL ART
     Route: 013

REACTIONS (10)
  - Muscle necrosis [Recovered/Resolved]
  - Citrobacter infection [Recovered/Resolved]
  - Staphylococcal bacteraemia [Recovered/Resolved]
  - Leukopenia [Unknown]
  - Nausea [Unknown]
  - Decreased appetite [Unknown]
  - Mucosal inflammation [Unknown]
  - Dermatitis [Unknown]
  - Conjunctivitis [Unknown]
  - Off label use [Unknown]
